FAERS Safety Report 8261858-1 (Version None)
Quarter: 2012Q2

REPORT INFORMATION
  Report Type: 
  Country: None (occurrence: None)
  Receive Date: 20120405
  Receipt Date: 20120329
  Transmission Date: 20120825
  Serious: Yes (Other)
  Sender: FDA-Public Use
  Company Number: CH-EISAI INC-E2020-10567-SPO-CH

PATIENT
  Sex: Male

DRUGS (12)
  1. SPIRIVA [Concomitant]
     Route: 055
  2. CYMBALTA [Concomitant]
     Dates: end: 20120131
  3. ARICEPT [Suspect]
     Route: 048
     Dates: start: 20100101, end: 20120127
  4. MEMANTINE HYDROCHLORIDE [Concomitant]
     Dates: end: 20120127
  5. NEXIUM [Concomitant]
  6. COLOSAN [Concomitant]
  7. SEROQUEL [Interacting]
     Route: 048
     Dates: start: 20100101, end: 20120203
  8. TAMSULOSIN HCL [Concomitant]
  9. ENOXAPARIN SODIUM [Concomitant]
     Route: 058
  10. DEANXIT [Concomitant]
     Dates: end: 20120112
  11. SEROQUEL [Interacting]
     Route: 048
     Dates: start: 20120316
  12. SYMBICORT [Concomitant]
     Dosage: 2 DOSAGE FORMS (200/60) BID
     Route: 055

REACTIONS (2)
  - DRUG INTERACTION [None]
  - BRADYCARDIA [None]
